FAERS Safety Report 13226606 (Version 1)
Quarter: 2017Q1

REPORT INFORMATION
  Report Type: Spontaneous
  Country: US (occurrence: US)
  Receive Date: 20170213
  Receipt Date: 20170213
  Transmission Date: 20170428
  Serious: No
  Sender: FDA-Public Use
  Company Number: None

PATIENT
  Age: 59 Year
  Sex: Male

DRUGS (4)
  1. EPCLUSA [Suspect]
     Active Substance: SOFOSBUVIR\VELPATASVIR
     Indication: HEPATITIS C
  2. LACTULOSE. [Concomitant]
     Active Substance: LACTULOSE
  3. EPCLUSA [Suspect]
     Active Substance: SOFOSBUVIR\VELPATASVIR
     Indication: GASTROOESOPHAGEAL REFLUX DISEASE
  4. RIBAVIRIN. [Concomitant]
     Active Substance: RIBAVIRIN

REACTIONS (8)
  - Pyrexia [None]
  - Platelet disorder [None]
  - Diarrhoea [None]
  - Nausea [None]
  - Decreased appetite [None]
  - Influenza like illness [None]
  - Fatigue [None]
  - Impaired work ability [None]

NARRATIVE: CASE EVENT DATE: 20170213
